FAERS Safety Report 21333141 (Version 1)
Quarter: 2022Q3

REPORT INFORMATION
  Report Type: Spontaneous
  Country: FR (occurrence: FR)
  Receive Date: 20220914
  Receipt Date: 20220914
  Transmission Date: 20221027
  Serious: Yes (Other)
  Sender: FDA-Public Use
  Company Number: None

PATIENT
  Age: 67 Year
  Sex: Male
  Weight: 68 kg

DRUGS (5)
  1. BENDAMUSTINE HYDROCHLORIDE [Suspect]
     Active Substance: BENDAMUSTINE HYDROCHLORIDE
     Indication: Marginal zone lymphoma
     Dosage: UNIT DOSE : 320MG, FREQUENCY TIME : 1 CYCLICAL, DURATION : 101 DAYS
     Route: 065
     Dates: start: 20220301, end: 20220610
  2. MABTHERA [Concomitant]
     Active Substance: RITUXIMAB
     Indication: Marginal zone lymphoma
     Dosage: UNIT DOSE : 650MG,FREQUENCY TIME : 1 CYCLICAL, DURATION : 79 DAYS
     Route: 065
     Dates: start: 20220301
  3. FILGRASTIM [Concomitant]
     Active Substance: FILGRASTIM
     Indication: Chemotherapy cytokine prophylaxis
     Dosage: STRENGTH : 30 MU/0.5 ML, UNIT DOSE : 4 DOSAGE FORMS, DURATION : 79 DAYS, FREQUENCY TIME : 1 CYCLICAL
     Route: 065
     Dates: start: 20220307, end: 20220529
  4. LEUCOVORIN CALCIUM [Concomitant]
     Active Substance: LEUCOVORIN CALCIUM
     Indication: Product used for unknown indication
     Dosage: UNIT DOSE : 1 DOSAGE FORM, FREQUENCY TIME : 1 WEEK, STRENGTH : 25 MG
     Dates: start: 20220301
  5. ATOVAQUONE [Concomitant]
     Active Substance: ATOVAQUONE
     Indication: Product used for unknown indication
     Dosage: STRENGTH : 750MG/5ML, UNIT DOSE : 2 DOSAGE FORM, FREQUENCY TIME : 1 DAY
     Dates: start: 20220307

REACTIONS (1)
  - Erythema nodosum [Recovered/Resolved]

NARRATIVE: CASE EVENT DATE: 20220430
